FAERS Safety Report 9046438 (Version 1)
Quarter: 2013Q1

REPORT INFORMATION
  Report Type: Spontaneous
  Country: US (occurrence: None)
  Receive Date: 20130128
  Receipt Date: 20130128
  Transmission Date: 20140127
  Serious: Yes (Other)
  Sender: FDA-Public Use
  Company Number: None

PATIENT
  Age: 9 Year
  Sex: Male
  Weight: 58.6 kg

DRUGS (1)
  1. MIDAZOLAM 10MG/5ML PERRIGO/PRECISION DOSE - REPACKAGED [Suspect]
     Indication: PREMEDICATION
     Route: 048
     Dates: start: 20130123, end: 20130123

REACTIONS (1)
  - Sedation [None]
